FAERS Safety Report 10617448 (Version 1)
Quarter: 2014Q4

REPORT INFORMATION
  Report Type: Spontaneous
  Country: FR (occurrence: FR)
  Receive Date: 20141201
  Receipt Date: 20141201
  Transmission Date: 20150529
  Serious: Yes (Hospitalization)
  Sender: FDA-Public Use
  Company Number: FR-DSJP-DSE-2014-130123

PATIENT

DRUGS (2)
  1. ALTEIS 20 MG [Suspect]
     Active Substance: OLMESARTAN MEDOXOMIL
     Indication: HYPERTENSION
     Dosage: 20 MG, QD
     Route: 048
     Dates: end: 201410
  2. EDEX [Suspect]
     Active Substance: ALPROSTADIL
     Indication: PRODUCT USED FOR UNKNOWN INDICATION
     Dosage: 10 ?G/ML, UNK
     Route: 017
     Dates: end: 201410

REACTIONS (1)
  - Aplastic anaemia [Not Recovered/Not Resolved]

NARRATIVE: CASE EVENT DATE: 201410
